FAERS Safety Report 5954132-7 (Version None)
Quarter: 2008Q4

REPORT INFORMATION
  Report Type: 
  Country: None (occurrence: None)
  Receive Date: 20081117
  Receipt Date: 20081112
  Transmission Date: 20090506
  Serious: Yes (Death, Life-Threatening, Hospitalization)
  Sender: FDA-Public Use
  Company Number: US-JNJFOC-20081005709

PATIENT

DRUGS (8)
  1. DOXORUBICIN HCL [Suspect]
     Indication: BREAST CANCER
     Route: 042
  2. PACLITAXEL [Suspect]
     Indication: BREAST CANCER
     Route: 065
  3. TRASTUZUMAB [Suspect]
     Indication: BREAST CANCER
     Route: 065
  4. DEXAMETHASONE 0.5MG TAB [Suspect]
     Indication: BREAST CANCER
     Route: 065
  5. METFORMIN HCL [Concomitant]
     Route: 065
  6. AVAPRO [Concomitant]
     Route: 048
  7. ZETIA [Concomitant]
     Route: 065
  8. METOPROLOL TARTRATE [Concomitant]
     Route: 065

REACTIONS (4)
  - BLISTER [None]
  - DECUBITUS ULCER [None]
  - DIVERTICULAR PERFORATION [None]
  - PALMAR-PLANTAR ERYTHRODYSAESTHESIA SYNDROME [None]
